FAERS Safety Report 12133577 (Version 3)
Quarter: 2017Q2

REPORT INFORMATION
  Report Type: Spontaneous
  Country: US (occurrence: US)
  Receive Date: 20160301
  Receipt Date: 20170428
  Transmission Date: 20170829
  Serious: No
  Sender: FDA-Public Use
  Company Number: US-009507513-1602USA011826

PATIENT
  Sex: Female
  Weight: 58.96 kg

DRUGS (1)
  1. NEXPLANON [Suspect]
     Active Substance: ETONOGESTREL
     Indication: CONTRACEPTION
     Dosage: 3 YEAR IMPLANT
     Route: 059

REACTIONS (5)
  - Menorrhagia [Unknown]
  - Menstruation irregular [Unknown]
  - Headache [Unknown]
  - Implant site pain [Unknown]
  - Muscle spasms [Unknown]
